FAERS Safety Report 7905202-5 (Version None)
Quarter: 2011Q4

REPORT INFORMATION
  Report Type: 
  Country: None (occurrence: None)
  Receive Date: 20111109
  Receipt Date: 20111104
  Transmission Date: 20120403
  Serious: Yes (Other)
  Sender: FDA-Public Use
  Company Number: US-BAYER-2011-107644

PATIENT
  Age: 54 Year
  Sex: Male
  Weight: 87.08 kg

DRUGS (6)
  1. LOSTATIN [Concomitant]
  2. MULTI-VITAMINS [Concomitant]
  3. MAGNEVIST [Suspect]
     Indication: NUCLEAR MAGNETIC RESONANCE IMAGING
     Dosage: 18 UNK, UNK, RIGHT FOREARM BY HAND INJECTION
     Route: 042
     Dates: start: 20111101
  4. PRILOSAC [Concomitant]
  5. ASPIRIN [Concomitant]
  6. LIPITOR [Concomitant]

REACTIONS (4)
  - ERYTHEMA [None]
  - DYSPNOEA [None]
  - PRURITUS [None]
  - URTICARIA [None]
